FAERS Safety Report 5920134-X (Version None)
Quarter: 2008Q4

REPORT INFORMATION
  Report Type: 
  Country: None (occurrence: None)
  Receive Date: 20081015
  Receipt Date: 20081015
  Transmission Date: 20090506
  Serious: Yes (Hospitalization)
  Sender: FDA-Public Use
  Company Number: None

PATIENT
  Age: 54 Year
  Sex: Male
  Weight: 124 kg

DRUGS (2)
  1. HEPARIN SODIUM 1,000 UNITS AND SODIUM CHLORIDE 0.9% [Suspect]
     Route: 041
     Dates: start: 20080922, end: 20080923
  2. HEPARIN [Suspect]
     Dosage: 5000 UNITS TID IV
     Route: 042
     Dates: start: 20080909, end: 20080919

REACTIONS (1)
  - HEPARIN-INDUCED THROMBOCYTOPENIA [None]
